FAERS Safety Report 12631984 (Version 2)
Quarter: 2016Q3

REPORT INFORMATION
  Report Type: Spontaneous
  Country: US (occurrence: US)
  Receive Date: 20160808
  Receipt Date: 20160808
  Transmission Date: 20161109
  Serious: No
  Sender: FDA-Public Use
  Company Number: US-BEH-2016061596

PATIENT
  Sex: Female
  Weight: 69 kg

DRUGS (20)
  1. HIZENTRA [Suspect]
     Active Substance: HUMAN IMMUNOGLOBULIN G
     Indication: HYPOGAMMAGLOBULINAEMIA
     Route: 058
  2. PRILOSEC [Concomitant]
     Active Substance: OMEPRAZOLE MAGNESIUM
  3. GENTAMICIN. [Concomitant]
     Active Substance: GENTAMICIN
  4. TRAZODONE [Concomitant]
     Active Substance: TRAZODONE HYDROCHLORIDE
  5. ARMOUR THYROID [Concomitant]
     Active Substance: THYROID, PORCINE
  6. HYDROCORTISONE. [Concomitant]
     Active Substance: HYDROCORTISONE
  7. PRISTIQ EXTENDED-RELEASE [Concomitant]
     Active Substance: DESVENLAFAXINE SUCCINATE
  8. FOLIC ACID. [Concomitant]
     Active Substance: FOLIC ACID
  9. EPIPEN [Concomitant]
     Active Substance: EPINEPHRINE
  10. L-M-X [Concomitant]
  11. XYZAL [Concomitant]
     Active Substance: LEVOCETIRIZINE DIHYDROCHLORIDE
  12. SINGULAIR [Concomitant]
     Active Substance: MONTELUKAST SODIUM
  13. MULTIVITAMINS [Concomitant]
     Active Substance: VITAMINS
  14. ACETAMINOPHEN. [Concomitant]
     Active Substance: ACETAMINOPHEN
  15. DIPHENHYDRAMINE. [Concomitant]
     Active Substance: DIPHENHYDRAMINE
  16. NALTREXONE [Concomitant]
     Active Substance: NALTREXONE
  17. HIZENTRA [Suspect]
     Active Substance: HUMAN IMMUNOGLOBULIN G
     Indication: SELECTIVE IGG SUBCLASS DEFICIENCY
     Route: 058
  18. LEVOCETIRIZINE [Concomitant]
     Active Substance: LEVOCETIRIZINE
  19. ADVIL [Concomitant]
     Active Substance: IBUPROFEN
  20. NYSTATIN. [Concomitant]
     Active Substance: NYSTATIN

REACTIONS (2)
  - Arthralgia [Unknown]
  - Pollakiuria [Unknown]
